FAERS Safety Report 23977819 (Version 4)
Quarter: 2025Q2

REPORT INFORMATION
  Report Type: Spontaneous
  Country: US (occurrence: US)
  Receive Date: 20240614
  Receipt Date: 20250417
  Transmission Date: 20250716
  Serious: Yes (Other)
  Sender: SANOFI AVENTIS
  Company Number: US-SA-SAC20240612000418

PATIENT
  Age: 64 Year
  Sex: Female

DRUGS (3)
  1. KEVZARA [Suspect]
     Active Substance: SARILUMAB
     Indication: Polymyalgia rheumatica
     Dosage: 200 MG, QOW
     Route: 058
     Dates: start: 202307, end: 2024
  2. KEVZARA [Suspect]
     Active Substance: SARILUMAB
     Indication: Immunodeficiency
     Dosage: 200 MG, QOW
     Route: 058
     Dates: start: 2024
  3. NUCALA [Concomitant]
     Active Substance: MEPOLIZUMAB

REACTIONS (6)
  - Polymyalgia rheumatica [Unknown]
  - Pneumonia [Unknown]
  - COVID-19 [Unknown]
  - Asthma [Unknown]
  - Asthma [Unknown]
  - Product use in unapproved indication [Unknown]

NARRATIVE: CASE EVENT DATE: 20230701
